FAERS Safety Report 21373759 (Version 2)
Quarter: 2022Q4

REPORT INFORMATION
  Report Type: Spontaneous
  Country: PK (occurrence: PK)
  Receive Date: 20220926
  Receipt Date: 20221007
  Transmission Date: 20230113
  Serious: Yes (Hospitalization)
  Sender: FDA-Public Use
  Company Number: PK-PFIZER INC-PV202200067637

PATIENT
  Age: 29 Year
  Sex: Female

DRUGS (8)
  1. ENBREL [Suspect]
     Active Substance: ETANERCEPT
     Indication: Rheumatoid arthritis
     Dosage: 50 MG, WEEKLY
     Route: 065
     Dates: start: 20211030
  2. ENBREL [Suspect]
     Active Substance: ETANERCEPT
     Dosage: 50 MG (ON 1ST AND 16TH OF EACH MONTH)
     Route: 058
  3. ENBREL [Suspect]
     Active Substance: ETANERCEPT
     Dosage: 50 MG, WEEKLY
     Route: 065
     Dates: start: 20211025
  4. ENBREL [Suspect]
     Active Substance: ETANERCEPT
     Dosage: UNK
     Route: 065
     Dates: start: 20211225
  5. METHOTREXATE [Concomitant]
     Active Substance: METHOTREXATE
     Dosage: 1 TAB IN MORNING AND HALF TAB IN EVENING ON FRIDAY ONLY
  6. FOLIC ACID [Concomitant]
     Active Substance: FOLIC ACID
     Dosage: 5 MG (EVERY SATURDAY AND SUNDAY)
  7. HYDROXYCHLOROQUINE SULFATE [Concomitant]
     Active Substance: HYDROXYCHLOROQUINE SULFATE
     Dosage: 200 MG, 1X/DAY(1 TAB IN AFTERNOON)
  8. MOTILIUM [Concomitant]
     Active Substance: DOMPERIDONE
     Dosage: 1+1 ONLY ON FRIDAY (TAKE THIS TABLET 20 MINUTES BEFORE CONSUMING MTX FOR NAUSEA)

REACTIONS (3)
  - Joint swelling [Unknown]
  - Blood pressure increased [Unknown]
  - Off label use [Unknown]

NARRATIVE: CASE EVENT DATE: 20220917
